FAERS Safety Report 17207345 (Version 4)
Quarter: 2020Q1

REPORT INFORMATION
  Report Type: Spontaneous
  Country: BE (occurrence: BE)
  Receive Date: 20191227
  Receipt Date: 20200327
  Transmission Date: 20200409
  Serious: Yes (Hospitalization)
  Sender: FDA-Public Use
  Company Number: BE-TEVA-2019-BE-1157701

PATIENT
  Age: 88 Year
  Sex: Male
  Weight: 57.4 kg

DRUGS (19)
  1. TRADONAL ODIS [Concomitant]
     Dosage: 1 DF
  2. D-CURE 25 000 UI [Concomitant]
  3. LIPITOR [Interacting]
     Active Substance: ATORVASTATIN CALCIUM
     Indication: CORONARY ANGIOPLASTY
     Dates: start: 20190916
  4. ATORVASTATINE 40 MG [Suspect]
     Active Substance: ATORVASTATIN
     Indication: HYPERCHOLESTEROLAEMIA
     Dosage: 40 MG
     Route: 048
     Dates: start: 20190916, end: 20191029
  5. LAXIDO [Concomitant]
     Active Substance: POLYETHYLENE GLYCOL 3350\POTASSIUM CHLORIDE\SODIUM BICARBONATE\SODIUM CHLORIDE
  6. RANOMAX 0,4MG/CAP [Concomitant]
  7. ASPIRINE 100 MG [Concomitant]
     Active Substance: ASPIRIN
     Indication: CORONARY ANGIOPLASTY
     Dates: start: 20190916
  8. ATROVENT [Concomitant]
     Active Substance: IPRATROPIUM BROMIDE
  9. BISOPROLOL 5 MG [Concomitant]
     Active Substance: BISOPROLOL
  10. PANTOPRAZOL 20 MG [Concomitant]
     Active Substance: PANTOPRAZOLE SODIUM
  11. NEORAL-SANDIMMUN [Suspect]
     Active Substance: CYCLOSPORINE
     Indication: RENAL TRANSPLANT
     Dosage: 75 MG
     Route: 048
     Dates: start: 20190916, end: 20191029
  12. PREDNISOLONE. [Concomitant]
     Active Substance: PREDNISOLONE
  13. PASSIFLORA INCARNATA [Concomitant]
     Active Substance: HERBALS\HOMEOPATHICS\PASSIFLORA INCARNATA FLOWERING TOP
     Dosage: DRUG NAME IS SEDISTRESS.
  14. LYSOMUCIL [Concomitant]
     Active Substance: ACETYLCYSTEINE
     Route: 065
  15. FUROSEMIDE 40 MG [Concomitant]
     Active Substance: FUROSEMIDE
  16. CLOPIDOGREL [Concomitant]
     Active Substance: CLOPIDOGREL BISULFATE
     Indication: CORONARY ANGIOPLASTY
     Dates: start: 20190916
  17. AMLODIPINE 10 MG [Concomitant]
     Active Substance: AMLODIPINE BESYLATE
  18. CALCIUM CARBONATE. [Concomitant]
     Active Substance: CALCIUM CARBONATE
  19. PARACETAMOL [Concomitant]
     Active Substance: ACETAMINOPHEN
     Dosage: 1 DF

REACTIONS (8)
  - Cholestasis [Recovering/Resolving]
  - Hepatitis C [Recovering/Resolving]
  - Drug interaction [Recovering/Resolving]
  - Bilirubin conjugated abnormal [Recovering/Resolving]
  - Blood creatine phosphokinase increased [Recovering/Resolving]
  - Cell death [Recovering/Resolving]
  - Blood creatinine abnormal [Recovering/Resolving]
  - Jaundice [Recovering/Resolving]

NARRATIVE: CASE EVENT DATE: 20191015
